FAERS Safety Report 5218196-0 (Version None)
Quarter: 2007Q1

REPORT INFORMATION
  Report Type: 
  Country: None (occurrence: None)
  Receive Date: 20061130
  Receipt Date: 20060629
  Transmission Date: 20070707
  Serious: Yes (Hospitalization, Other)
  Sender: FDA-Public Use
  Company Number: US200603000250

PATIENT
  Age: 44 Year
  Sex: Male
  Weight: 86.2 kg

DRUGS (11)
  1. ZYPREXA [Suspect]
     Dosage: SEE IMAGE
     Dates: start: 20010123
  2. ZYPREXA [Suspect]
     Dosage: SEE IMAGE
     Dates: start: 20020601
  3. ZYPREXA [Suspect]
     Dosage: SEE IMAGE
     Dates: start: 20031001
  4. RISPERIDONE [Concomitant]
  5. ZIPRASIDONE HCL [Concomitant]
  6. HALOPERIDOL [Concomitant]
  7. DEPAKOTE [Concomitant]
  8. INSULIN [Concomitant]
  9. INSULIN [Concomitant]
  10. ROSIGLITAZONE [Concomitant]
  11. PREDNISONE [Concomitant]

REACTIONS (9)
  - BLOOD CHOLESTEROL INCREASED [None]
  - BLOOD TRIGLYCERIDES INCREASED [None]
  - DIABETES MELLITUS INSULIN-DEPENDENT [None]
  - DIABETIC KETOACIDOSIS [None]
  - GLYCOSURIA [None]
  - HYPERGLYCAEMIA [None]
  - HYPERTENSION [None]
  - PANCREATITIS [None]
  - WEIGHT INCREASED [None]
